FAERS Safety Report 4357664-0 (Version None)
Quarter: 2004Q2

REPORT INFORMATION
  Report Type: 
  Country: None (occurrence: None)
  Receive Date: 20040513
  Receipt Date: 20031118
  Transmission Date: 20050107
  Serious: Yes (Other)
  Sender: FDA-Public Use
  Company Number: FR-MERCK-0311FRA00046

PATIENT
  Age: 79 Year
  Sex: Female

DRUGS (6)
  1. CALCIUM CARBONATE [Concomitant]
     Route: 048
  2. ETANERCEPT [Suspect]
     Indication: RHEUMATOID ARTHRITIS
     Route: 058
     Dates: start: 20030501, end: 20030916
  3. FUROSEMIDE AND SPIRONOLACTONE [Concomitant]
     Indication: HYPERTENSION
     Route: 048
  4. MORPHINE SULFATE [Concomitant]
     Route: 065
  5. PREDNISONE [Concomitant]
     Indication: RHEUMATOID ARTHRITIS
     Route: 065
  6. VIOXX [Suspect]
     Indication: RHEUMATOID ARTHRITIS
     Route: 048
     Dates: end: 20030901

REACTIONS (2)
  - ANGIONEUROTIC OEDEMA [None]
  - HAEMORRHAGE SUBCUTANEOUS [None]
